FAERS Safety Report 8557288-5 (Version None)
Quarter: 2012Q3

REPORT INFORMATION
  Report Type: 
  Country: None (occurrence: None)
  Receive Date: 20120801
  Receipt Date: 20120727
  Transmission Date: 20120928
  Serious: Yes (Other)
  Sender: FDA-Public Use
  Company Number: US-009507513-2012SP023955

PATIENT

DRUGS (12)
  1. LAMICTAL [Suspect]
     Indication: PRODUCT USED FOR UNKNOWN INDICATION
     Route: 048
  2. BUTORPHANOL TARTRATE [Suspect]
     Indication: PRODUCT USED FOR UNKNOWN INDICATION
  3. ACETAMINOPHEN [Suspect]
     Indication: PRODUCT USED FOR UNKNOWN INDICATION
     Route: 048
  4. VITAMINS (UNSPECIFIED) [Concomitant]
  5. TOPAMAX [Suspect]
     Indication: PRODUCT USED FOR UNKNOWN INDICATION
     Route: 048
  6. PROMETHAZINE HYDROCHLORIDE [Suspect]
     Indication: PRODUCT USED FOR UNKNOWN INDICATION
  7. PREVACID [Suspect]
     Indication: PRODUCT USED FOR UNKNOWN INDICATION
     Route: 048
  8. LORATADINE [Suspect]
     Indication: PRODUCT USED FOR UNKNOWN INDICATION
     Route: 048
  9. MISOPROSTOL [Suspect]
     Indication: PRODUCT USED FOR UNKNOWN INDICATION
  10. FERROUS GLUCONATE [Concomitant]
     Indication: PRODUCT USED FOR UNKNOWN INDICATION
  11. PHENOBARBITAL TAB [Suspect]
     Indication: PRODUCT USED FOR UNKNOWN INDICATION
     Route: 048
  12. NASONEX [Suspect]
     Indication: PRODUCT USED FOR UNKNOWN INDICATION
     Route: 045

REACTIONS (3)
  - DEPRESSION [None]
  - ANXIETY [None]
  - MATERNAL EXPOSURE DURING PREGNANCY [None]
